FAERS Safety Report 13545786 (Version 1)
Quarter: 2017Q2

REPORT INFORMATION
  Report Type: Spontaneous
  Country: US (occurrence: US)
  Receive Date: 20170515
  Receipt Date: 20170515
  Transmission Date: 20170830
  Serious: No
  Sender: FDA-Public Use
  Company Number: US-WARNER CHILCOTT-2016-002937

PATIENT
  Age: 69 Year
  Sex: Female

DRUGS (1)
  1. RISEDRONATE [Suspect]
     Active Substance: RISEDRONATE SODIUM
     Indication: BONE DENSITY ABNORMAL
     Dosage: UNK, UNKNOWN
     Route: 048
     Dates: start: 20160829, end: 20160829

REACTIONS (5)
  - Arthralgia [Unknown]
  - Painful respiration [Unknown]
  - Walking aid user [Unknown]
  - Back pain [Unknown]
  - Joint swelling [Unknown]

NARRATIVE: CASE EVENT DATE: 201609
